FAERS Safety Report 5909952-1 (Version None)
Quarter: 2008Q4

REPORT INFORMATION
  Report Type: 
  Country: None (occurrence: None)
  Receive Date: 20081007
  Receipt Date: 20080930
  Transmission Date: 20090506
  Serious: Yes (Life-Threatening, Hospitalization)
  Sender: FDA-Public Use
  Company Number: US-ROCHE-584719

PATIENT
  Age: 69 Year
  Sex: Female

DRUGS (3)
  1. BONIVA [Suspect]
     Indication: OSTEOPOROSIS
     Route: 065
     Dates: start: 20080601, end: 20080801
  2. UNSPECIFIED DRUGS [Concomitant]
     Dosage: DRUG REPORTED AS MS MEDS
  3. GABAPENTIN [Concomitant]
     Dates: start: 20040315

REACTIONS (1)
  - BLOOD SODIUM DECREASED [None]
